FAERS Safety Report 8390466-7 (Version None)
Quarter: 2012Q2

REPORT INFORMATION
  Report Type: 
  Country: None (occurrence: None)
  Receive Date: 20120522
  Receipt Date: 20120518
  Transmission Date: 20120825
  Serious: Yes (Other)
  Sender: FDA-Public Use
  Company Number: 2010SP020413

PATIENT
  Age: 42 Year
  Sex: Male
  Weight: 83 kg

DRUGS (30)
  1. TEMODAL [Suspect]
     Indication: ANAPLASTIC ASTROCYTOMA
     Dosage: 75 MG/M2;QD;PO 150 MG/M2;QD;PO 200 MG/M2;QD;PO
     Route: 048
     Dates: start: 20081201, end: 20081205
  2. TEMODAL [Suspect]
     Indication: ANAPLASTIC ASTROCYTOMA
     Dosage: 75 MG/M2;QD;PO 150 MG/M2;QD;PO 200 MG/M2;QD;PO
     Route: 048
     Dates: start: 20081222, end: 20081226
  3. TEMODAL [Suspect]
     Indication: ANAPLASTIC ASTROCYTOMA
     Dosage: 75 MG/M2;QD;PO 150 MG/M2;QD;PO 200 MG/M2;QD;PO
     Route: 048
     Dates: start: 20090413, end: 20090417
  4. TEMODAL [Suspect]
     Indication: ANAPLASTIC ASTROCYTOMA
     Dosage: 75 MG/M2;QD;PO 150 MG/M2;QD;PO 200 MG/M2;QD;PO
     Route: 048
     Dates: start: 20071211, end: 20071228
  5. TEMODAL [Suspect]
     Indication: ANAPLASTIC ASTROCYTOMA
     Dosage: 75 MG/M2;QD;PO 150 MG/M2;QD;PO 200 MG/M2;QD;PO
     Route: 048
     Dates: start: 20080225, end: 20080229
  6. TEMODAL [Suspect]
     Indication: ANAPLASTIC ASTROCYTOMA
     Dosage: 75 MG/M2;QD;PO 150 MG/M2;QD;PO 200 MG/M2;QD;PO
     Route: 048
     Dates: start: 20081027, end: 20081031
  7. TEMODAL [Suspect]
     Indication: ANAPLASTIC ASTROCYTOMA
     Dosage: 75 MG/M2;QD;PO 150 MG/M2;QD;PO 200 MG/M2;QD;PO
     Route: 048
     Dates: start: 20090223, end: 20090227
  8. TEMODAL [Suspect]
     Indication: ANAPLASTIC ASTROCYTOMA
     Dosage: 75 MG/M2;QD;PO 150 MG/M2;QD;PO 200 MG/M2;QD;PO
     Route: 048
     Dates: start: 20090629, end: 20090703
  9. TEMODAL [Suspect]
     Indication: ANAPLASTIC ASTROCYTOMA
     Dosage: 75 MG/M2;QD;PO 150 MG/M2;QD;PO 200 MG/M2;QD;PO
     Route: 048
     Dates: start: 20081006, end: 20081010
  10. TEMODAL [Suspect]
     Indication: ANAPLASTIC ASTROCYTOMA
     Dosage: 75 MG/M2;QD;PO 150 MG/M2;QD;PO 200 MG/M2;QD;PO
     Route: 048
     Dates: start: 20090511, end: 20090515
  11. TEMODAL [Suspect]
     Indication: ANAPLASTIC ASTROCYTOMA
     Dosage: 75 MG/M2;QD;PO 150 MG/M2;QD;PO 200 MG/M2;QD;PO
     Route: 048
     Dates: start: 20090928, end: 20091002
  12. TEMODAL [Suspect]
     Indication: ANAPLASTIC ASTROCYTOMA
     Dosage: 75 MG/M2;QD;PO 150 MG/M2;QD;PO 200 MG/M2;QD;PO
     Route: 048
     Dates: start: 20080324, end: 20080328
  13. TEMODAL [Suspect]
     Indication: ANAPLASTIC ASTROCYTOMA
     Dosage: 75 MG/M2;QD;PO 150 MG/M2;QD;PO 200 MG/M2;QD;PO
     Route: 048
     Dates: start: 20080811, end: 20080815
  14. TEMODAL [Suspect]
     Indication: ANAPLASTIC ASTROCYTOMA
     Dosage: 75 MG/M2;QD;PO 150 MG/M2;QD;PO 200 MG/M2;QD;PO
     Route: 048
     Dates: start: 20071030, end: 20071119
  15. TEMODAL [Suspect]
     Indication: ANAPLASTIC ASTROCYTOMA
     Dosage: 75 MG/M2;QD;PO 150 MG/M2;QD;PO 200 MG/M2;QD;PO
     Route: 048
     Dates: start: 20080519, end: 20080523
  16. TEMODAL [Suspect]
     Indication: ANAPLASTIC ASTROCYTOMA
     Dosage: 75 MG/M2;QD;PO 150 MG/M2;QD;PO 200 MG/M2;QD;PO
     Route: 048
     Dates: start: 20080616, end: 20080620
  17. TEMODAL [Suspect]
     Indication: ANAPLASTIC ASTROCYTOMA
     Dosage: 75 MG/M2;QD;PO 150 MG/M2;QD;PO 200 MG/M2;QD;PO
     Route: 048
     Dates: start: 20090126, end: 20090130
  18. TEMODAL [Suspect]
     Indication: ANAPLASTIC ASTROCYTOMA
     Dosage: 75 MG/M2;QD;PO 150 MG/M2;QD;PO 200 MG/M2;QD;PO
     Route: 048
     Dates: start: 20090323, end: 20090327
  19. TEMODAL [Suspect]
     Indication: ANAPLASTIC ASTROCYTOMA
     Dosage: 75 MG/M2;QD;PO 150 MG/M2;QD;PO 200 MG/M2;QD;PO
     Route: 048
     Dates: start: 20090803, end: 20090807
  20. TEMODAL [Suspect]
     Indication: ANAPLASTIC ASTROCYTOMA
     Dosage: 75 MG/M2;QD;PO 150 MG/M2;QD;PO 200 MG/M2;QD;PO
     Route: 048
     Dates: start: 20091026, end: 20110812
  21. TEMODAL [Suspect]
     Indication: ANAPLASTIC ASTROCYTOMA
     Dosage: 75 MG/M2;QD;PO 150 MG/M2;QD;PO 200 MG/M2;QD;PO
     Route: 048
     Dates: start: 20080714, end: 20080718
  22. TEMODAL [Suspect]
     Indication: ANAPLASTIC ASTROCYTOMA
     Dosage: 75 MG/M2;QD;PO 150 MG/M2;QD;PO 200 MG/M2;QD;PO
     Route: 048
     Dates: start: 20090601, end: 20090605
  23. TEMODAL [Suspect]
     Indication: ANAPLASTIC ASTROCYTOMA
     Dosage: 75 MG/M2;QD;PO 150 MG/M2;QD;PO 200 MG/M2;QD;PO
     Route: 048
     Dates: start: 20090824, end: 20090828
  24. TEMODAL [Suspect]
     Indication: ANAPLASTIC ASTROCYTOMA
     Dosage: 75 MG/M2;QD;PO 150 MG/M2;QD;PO 200 MG/M2;QD;PO
     Route: 048
     Dates: start: 20080421, end: 20080425
  25. TEMODAL [Suspect]
     Indication: ANAPLASTIC ASTROCYTOMA
     Dosage: 75 MG/M2;QD;PO 150 MG/M2;QD;PO 200 MG/M2;QD;PO
     Route: 048
     Dates: start: 20080902, end: 20080905
  26. PAXIL [Suspect]
     Indication: PRODUCT USED FOR UNKNOWN INDICATION
     Dosage: PO
     Route: 048
     Dates: end: 20071206
  27. ALPRAZOLAM [Suspect]
     Indication: PRODUCT USED FOR UNKNOWN INDICATION
     Dosage: PO
     Route: 048
     Dates: end: 20080118
  28. AMITRIPTYLINE HCL [Concomitant]
  29. KYTRIL [Concomitant]
  30. COTRIM [Concomitant]

REACTIONS (2)
  - EOSINOPHIL COUNT INCREASED [None]
  - FACE OEDEMA [None]
